FAERS Safety Report 13839481 (Version 1)
Quarter: 2017Q3

REPORT INFORMATION
  Report Type: Spontaneous
  Country: US (occurrence: US)
  Receive Date: 20170805
  Receipt Date: 20170805
  Transmission Date: 20171127
  Serious: Yes (Death)
  Sender: FDA-Public Use
  Company Number: None

PATIENT
  Age: 35 Year
  Sex: Female

DRUGS (1)
  1. ACETAMINOPHEN. [Suspect]
     Active Substance: ACETAMINOPHEN
     Indication: PAIN
     Route: 048
     Dates: start: 20170503, end: 20170504

REACTIONS (6)
  - Acute hepatic failure [None]
  - Renal injury [None]
  - Coagulopathy [None]
  - Overdose [None]
  - Shock [None]
  - Toxicity to various agents [None]

NARRATIVE: CASE EVENT DATE: 20170504
